FAERS Safety Report 24432901 (Version 1)
Quarter: 2024Q4

REPORT INFORMATION
  Report Type: Spontaneous
  Country: JP (occurrence: JP)
  Receive Date: 20241014
  Receipt Date: 20241014
  Transmission Date: 20250114
  Serious: Yes (Other)
  Sender: MERCK
  Company Number: JP-MSD-M2024-40538

PATIENT
  Age: 8 Decade
  Sex: Female

DRUGS (6)
  1. KEYTRUDA [Suspect]
     Active Substance: PEMBROLIZUMAB
     Indication: Breast cancer
     Dosage: 200 MILLIGRAM, Q3W
     Route: 041
     Dates: start: 202409
  2. KEYTRUDA [Suspect]
     Active Substance: PEMBROLIZUMAB
     Indication: PD-L1 positive cancer
  3. CARBOPLATIN [Suspect]
     Active Substance: CARBOPLATIN
     Indication: Breast cancer
     Dosage: UNK
     Route: 065
     Dates: start: 202409
  4. CARBOPLATIN [Suspect]
     Active Substance: CARBOPLATIN
     Indication: PD-L1 positive cancer
  5. PACLITAXEL [Suspect]
     Active Substance: PACLITAXEL
     Indication: Breast cancer
     Dosage: UNK
     Route: 065
     Dates: start: 202409, end: 2024
  6. PACLITAXEL [Suspect]
     Active Substance: PACLITAXEL
     Indication: PD-L1 positive cancer

REACTIONS (3)
  - Tumour lysis syndrome [Unknown]
  - Inflammation [Unknown]
  - Erythema [Unknown]

NARRATIVE: CASE EVENT DATE: 20240901
